FAERS Safety Report 6813457-3 (Version None)
Quarter: 2010Q3

REPORT INFORMATION
  Report Type: 
  Country: None (occurrence: None)
  Receive Date: 20100701
  Receipt Date: 20100623
  Transmission Date: 20110219
  Serious: Yes (Other)
  Sender: FDA-Public Use
  Company Number: US-PFIZER INC-2010061758

PATIENT
  Age: 61 Year
  Sex: Male
  Weight: 105 kg

DRUGS (2)
  1. CHANTIX [Suspect]
     Indication: SMOKING CESSATION THERAPY
     Dosage: 1 MG, 2X/DAY
     Route: 048
  2. MS CONTIN [Suspect]

REACTIONS (2)
  - DRUG ABUSE [None]
  - PSYCHOTIC DISORDER [None]
